FAERS Safety Report 13840962 (Version 1)
Quarter: 2017Q3

REPORT INFORMATION
  Report Type: Spontaneous
  Country: FR (occurrence: FR)
  Receive Date: 20170807
  Receipt Date: 20170807
  Transmission Date: 20171127
  Serious: Yes (Death, Congenital Anomaly)
  Sender: FDA-Public Use
  Company Number: FR-PFIZER INC-2017335327

PATIENT
  Sex: Female
  Weight: .82 kg

DRUGS (7)
  1. RELPAX [Suspect]
     Active Substance: ELETRIPTAN HYDROBROMIDE
     Indication: HEADACHE
     Dosage: UNK
     Route: 064
     Dates: start: 2012
  2. AVLOCARDYL /00030001/ [Suspect]
     Active Substance: PROPRANOLOL HYDROCHLORIDE
     Indication: HEADACHE
     Dosage: UNK
     Route: 064
     Dates: start: 20121029
  3. MAG 2 /00454301/ [Suspect]
     Active Substance: MAGNESIUM CARBONATE
     Indication: MINERAL SUPPLEMENTATION
     Dosage: UNK
     Route: 064
     Dates: start: 201301
  4. DAFALGAN CODEINE [Suspect]
     Active Substance: ACETAMINOPHEN\CODEINE PHOSPHATE
     Indication: HEADACHE
     Dosage: UNK
     Route: 064
     Dates: start: 20121029
  5. SPIFEN [Suspect]
     Active Substance: IBUPROFEN
     Indication: HEADACHE
     Dosage: UNK
     Route: 064
     Dates: start: 20121029
  6. VOGALENE [Suspect]
     Active Substance: METOPIMAZINE
     Indication: HEADACHE
     Dosage: UNK
     Route: 064
     Dates: start: 20121123
  7. GYNEFAM XL [Suspect]
     Active Substance: FISH OIL\MINERALS\VITAMINS
     Dosage: UNK
     Route: 064
     Dates: start: 20121123

REACTIONS (2)
  - Congenital central nervous system anomaly [Fatal]
  - Maternal exposure during pregnancy [Fatal]

NARRATIVE: CASE EVENT DATE: 2012
